FAERS Safety Report 18689117 (Version 2)
Quarter: 2021Q1

REPORT INFORMATION
  Report Type: Report from Study
  Country: BR (occurrence: BR)
  Receive Date: 20201231
  Receipt Date: 20210108
  Transmission Date: 20210419
  Serious: Yes (Other)
  Sender: FDA-Public Use
  Company Number: BR-JNJFOC-20180707597

PATIENT
  Age: 64 Year
  Sex: Male
  Weight: 94 kg

DRUGS (2)
  1. STELARA [Suspect]
     Active Substance: USTEKINUMAB
  2. STELARA [Suspect]
     Active Substance: USTEKINUMAB
     Indication: PSORIATIC ARTHROPATHY
     Dosage: END DATE ABOUT ONE MONTH AGO
     Route: 058
     Dates: start: 20180721

REACTIONS (6)
  - Drug ineffective [Unknown]
  - Pain [Unknown]
  - Incorrect dose administered [Unknown]
  - Prostate cancer [Unknown]
  - Off label use [Unknown]
  - Gait inability [Unknown]

NARRATIVE: CASE EVENT DATE: 20200901
